FAERS Safety Report 8583595-6 (Version None)
Quarter: 2012Q3

REPORT INFORMATION
  Report Type: 
  Country: None (occurrence: None)
  Receive Date: 20120809
  Receipt Date: 20120727
  Transmission Date: 20120928
  Serious: Yes (Hospitalization)
  Sender: FDA-Public Use
  Company Number: ES-MYLANLABS-2012S1015747

PATIENT
  Age: 47 Year
  Sex: Female

DRUGS (3)
  1. CLARITHROMYCIN [Suspect]
     Indication: HELICOBACTER INFECTION
     Route: 065
  2. AMOXICILLIN [Concomitant]
     Indication: HELICOBACTER INFECTION
     Route: 065
  3. OMEPRAZOLE [Concomitant]
     Indication: HELICOBACTER INFECTION
     Route: 065

REACTIONS (1)
  - BIPOLAR I DISORDER [None]
